FAERS Safety Report 22146509 (Version 2)
Quarter: 2023Q2

REPORT INFORMATION
  Report Type: Spontaneous
  Country: US (occurrence: US)
  Receive Date: 20230328
  Receipt Date: 20230410
  Transmission Date: 20230722
  Serious: Yes (Other)
  Sender: FDA-Public Use
  Company Number: US-SUN PHARMACEUTICAL INDUSTRIES LTD-2023R1-382512

PATIENT
  Age: 75 Year
  Sex: Female

DRUGS (1)
  1. ARIMIDEX [Suspect]
     Active Substance: ANASTROZOLE
     Indication: Intraductal proliferative breast lesion
     Dosage: UNK
     Route: 065

REACTIONS (3)
  - Disease progression [Unknown]
  - Metastases to bone [Unknown]
  - Metastases to liver [Unknown]
